FAERS Safety Report 19052235 (Version 9)
Quarter: 2022Q2

REPORT INFORMATION
  Report Type: Report from Study
  Country: KR (occurrence: None)
  Receive Date: 20210324
  Receipt Date: 20220617
  Transmission Date: 20220721
  Serious: Yes (Hospitalization)
  Sender: FDA-Public Use
  Company Number: KR-ROCHE-2795890

PATIENT
  Age: 66 Year
  Sex: Male
  Weight: 55.7 kg

DRUGS (17)
  1. ATEZOLIZUMAB [Suspect]
     Active Substance: ATEZOLIZUMAB
     Indication: Oesophageal cancer metastatic
     Dosage: ON 10/MAR/2021, HE RECEIVED THE MOST RECENT DOE OF ATEZOLIZUMAB 1200 MG PRIOR TO ADVERSE EVENT(AE).
     Route: 041
     Dates: start: 20210310
  2. ATEZOLIZUMAB [Suspect]
     Active Substance: ATEZOLIZUMAB
     Indication: Gastric cancer
  3. FLUOROURACIL [Suspect]
     Active Substance: FLUOROURACIL
     Indication: Oesophageal cancer metastatic
     Dosage: ON 10/MAR/2021, HE RECEIVED THE MOST RECENT DOE OF 5-FU (1000 UNIT NOT REPORTED) PRIOR TO SAE.?ON 14
     Route: 042
     Dates: start: 20210310
  4. CISPLATIN [Suspect]
     Active Substance: CISPLATIN
     Indication: Oesophageal cancer metastatic
     Dosage: ON 10/MAR/2021, HE RECEIVED THE MOST RECENT DOE OF CISPLATIN (80 UNIT NOT REPORTED) PRIOR TO SAE.(13
     Route: 042
     Dates: start: 20210310
  5. FENTANYL [Concomitant]
     Active Substance: FENTANYL
     Indication: Neck pain
     Dates: start: 20210219
  6. FENTANYL [Concomitant]
     Active Substance: FENTANYL
     Indication: Pain in extremity
     Route: 060
     Dates: start: 20210226
  7. ERDOSTEINE [Concomitant]
     Active Substance: ERDOSTEINE
     Indication: Prophylaxis
     Dates: start: 20210307
  8. MANNITOL [Concomitant]
     Active Substance: MANNITOL
     Indication: Premedication
     Dates: start: 20210310
  9. FUROSEMIDE [Concomitant]
     Active Substance: FUROSEMIDE
     Indication: Premedication
     Dates: start: 20210310
  10. PALONOSETRON [Concomitant]
     Active Substance: PALONOSETRON
     Indication: Premedication
     Dates: start: 20210310
  11. FOSAPREPITANT [Concomitant]
     Active Substance: FOSAPREPITANT
     Indication: Premedication
     Dates: start: 20210310
  12. DALTEPARIN [Concomitant]
     Active Substance: DALTEPARIN
     Indication: Prophylaxis
     Dates: start: 20210310
  13. AMBROXOL [Concomitant]
     Active Substance: AMBROXOL
     Indication: Prophylaxis
     Dates: start: 20210312
  14. METOCLOPRAMIDE [Concomitant]
     Active Substance: METOCLOPRAMIDE
     Indication: Nausea
     Dates: start: 20210312, end: 20210314
  15. ACETYLCYSTEINE [Concomitant]
     Active Substance: ACETYLCYSTEINE
     Indication: Productive cough
     Dates: start: 20210318
  16. PERIOLIMEL N4E [Concomitant]
     Indication: Prophylaxis
     Dates: start: 20210319, end: 20210320
  17. MAGNESIUM OXIDE [Concomitant]
     Active Substance: MAGNESIUM OXIDE
     Indication: Constipation prophylaxis
     Dates: start: 20210219

REACTIONS (1)
  - Blood creatinine increased [Recovered/Resolved]

NARRATIVE: CASE EVENT DATE: 20210317
